FAERS Safety Report 11400792 (Version 1)
Quarter: 2015Q3

REPORT INFORMATION
  Report Type: Spontaneous
  Country: PL (occurrence: PL)
  Receive Date: 20150820
  Receipt Date: 20150820
  Transmission Date: 20151125
  Serious: Yes (Death, Life-Threatening, Hospitalization)
  Sender: FDA-Public Use
  Company Number: PL-BAYER-2015-391712

PATIENT
  Age: 63 Year
  Sex: Male
  Weight: 76 kg

DRUGS (1)
  1. ULTRAVIST [Suspect]
     Active Substance: IOPROMIDE
     Indication: COMPUTERISED TOMOGRAM
     Dosage: 80 ML, ONCE
     Route: 042
     Dates: start: 20150722, end: 20150722

REACTIONS (3)
  - Anaphylactic shock [None]
  - Micturition disorder [None]
  - Death [Fatal]

NARRATIVE: CASE EVENT DATE: 2015
